FAERS Safety Report 5166108-0 (Version None)
Quarter: 2006Q4

REPORT INFORMATION
  Report Type: 
  Country: None (occurrence: None)
  Receive Date: 20061129
  Receipt Date: 20061115
  Transmission Date: 20070319
  Serious: Yes (Other)
  Sender: FDA-Public Use
  Company Number: SPV1-2006-00879

PATIENT
  Age: 9 Year
  Sex: Male
  Weight: 49.9 kg

DRUGS (6)
  1. DAYTRANA [Suspect]
     Indication: ASPERGER'S DISORDER
     Dosage: 10 + 15 MG ONE AND 1/ 2 PATCHES, TRANSDERMAL - SEE IMAGE
     Route: 062
     Dates: start: 20060710, end: 20060710
  2. DAYTRANA [Suspect]
     Indication: ASPERGER'S DISORDER
     Dosage: 10 + 15 MG ONE AND 1/ 2 PATCHES, TRANSDERMAL - SEE IMAGE
     Route: 062
     Dates: start: 20060712, end: 20060712
  3. DAYTRANA [Suspect]
     Indication: ASPERGER'S DISORDER
     Dosage: 10 + 15 MG ONE AND 1/ 2 PATCHES, TRANSDERMAL - SEE IMAGE
     Route: 062
     Dates: start: 20060713, end: 20060718
  4. DAYTRANA [Suspect]
     Indication: ASPERGER'S DISORDER
     Dosage: 10 + 15 MG ONE AND 1/ 2 PATCHES, TRANSDERMAL - SEE IMAGE
     Route: 062
     Dates: start: 20060711, end: 20060912
  5. DAYTRANA [Suspect]
     Indication: ASPERGER'S DISORDER
     Dosage: 10 + 15 MG ONE AND 1/ 2 PATCHES, TRANSDERMAL - SEE IMAGE
     Route: 062
     Dates: start: 20060719
  6. RITALIN (METHYLPHENIDA HYDROCHLORIDE) [Concomitant]

REACTIONS (11)
  - APPLICATION SITE ERYTHEMA [None]
  - APPLICATION SITE INFLAMMATION [None]
  - APPLICATION SITE RASH [None]
  - APPLICATION SITE REACTION [None]
  - DRUG HYPERSENSITIVITY [None]
  - DRUG INEFFECTIVE [None]
  - OFF LABEL USE [None]
  - RASH ERYTHEMATOUS [None]
  - RASH PAPULAR [None]
  - RASH PRURITIC [None]
  - WOUND SECRETION [None]
